FAERS Safety Report 22894470 (Version 3)
Quarter: 2024Q2

REPORT INFORMATION
  Report Type: Spontaneous
  Country: US (occurrence: US)
  Receive Date: 20230901
  Receipt Date: 20240531
  Transmission Date: 20240716
  Serious: Yes (Other)
  Sender: FDA-Public Use
  Company Number: US-JNJFOC-20230864257

PATIENT
  Age: 63 Year
  Sex: Female
  Weight: 79.8 kg

DRUGS (39)
  1. OPSUMIT [Suspect]
     Active Substance: MACITENTAN
     Indication: Product used for unknown indication
     Route: 048
  2. IMODIUM A-D [Suspect]
     Active Substance: LOPERAMIDE HYDROCHLORIDE
     Indication: Product used for unknown indication
     Route: 065
  3. TREPROSTINIL [Suspect]
     Active Substance: TREPROSTINIL
     Indication: Pulmonary arterial hypertension
     Route: 048
     Dates: start: 20230803
  4. ORENITRAM [Suspect]
     Active Substance: TREPROSTINIL
     Indication: Pulmonary hypertension
     Route: 048
  5. ORENITRAM [Suspect]
     Active Substance: TREPROSTINIL
     Route: 048
     Dates: start: 202308, end: 2023
  6. ORENITRAM [Suspect]
     Active Substance: TREPROSTINIL
     Route: 048
     Dates: start: 202308, end: 2023
  7. ORENITRAM [Suspect]
     Active Substance: TREPROSTINIL
     Route: 048
     Dates: start: 2023, end: 2023
  8. ORENITRAM [Suspect]
     Active Substance: TREPROSTINIL
     Route: 048
     Dates: start: 20230906, end: 20230921
  9. ORENITRAM [Suspect]
     Active Substance: TREPROSTINIL
     Route: 048
     Dates: start: 20230921
  10. ORENITRAM [Suspect]
     Active Substance: TREPROSTINIL
     Dosage: 3 TABLETS OF 0.25 MG
     Route: 048
  11. ORENITRAM [Suspect]
     Active Substance: TREPROSTINIL
     Route: 048
  12. ORENITRAM [Suspect]
     Active Substance: TREPROSTINIL
     Route: 048
  13. SILDENAFIL CITRATE [Suspect]
     Active Substance: SILDENAFIL CITRATE
  14. AMLODIPINE BESYLATE [Suspect]
     Active Substance: AMLODIPINE BESYLATE
  15. TADALAFIL [Suspect]
     Active Substance: TADALAFIL
  16. ELIQUIS [Concomitant]
     Active Substance: APIXABAN
  17. BIOTIN [Concomitant]
     Active Substance: BIOTIN
  18. POTASSIUM CHLORIDE [Concomitant]
     Active Substance: POTASSIUM CHLORIDE
  19. VITAMIN D3 [Concomitant]
     Active Substance: CHOLECALCIFEROL
  20. VITAMIN E [Concomitant]
     Active Substance: .ALPHA.-TOCOPHEROL
  21. RECLAST [Concomitant]
     Active Substance: ZOLEDRONIC ACID
  22. COENZYME Q10 [Concomitant]
     Active Substance: DIETARY SUPPLEMENT\UBIDECARENONE
  23. CORGARD [Concomitant]
     Active Substance: NADOLOL
  24. FLUOCINOLONE ACETONIDE [Concomitant]
     Active Substance: FLUOCINOLONE ACETONIDE
  25. FLONASE ALLERGY RELIEF [Concomitant]
     Active Substance: FLUTICASONE PROPIONATE
  26. ZINC [Concomitant]
     Active Substance: PYRITHIONE ZINC\ZINC\ZINC CHLORIDE
  27. OXYGEN [Concomitant]
     Active Substance: OXYGEN
  28. AZELASTINE HYDROCHLORIDE [Concomitant]
     Active Substance: AZELASTINE HYDROCHLORIDE
  29. TRAZODONE HCL [Concomitant]
     Active Substance: TRAZODONE HYDROCHLORIDE
  30. B12 ACTIVE [Concomitant]
  31. LORATADINE [Concomitant]
     Active Substance: LORATADINE
  32. APPLE CIDER VINEGAR [MALUS SPP. VINEGAR EXTRACT] [Concomitant]
  33. LASIX [Concomitant]
     Active Substance: FUROSEMIDE
  34. CALCIUM CARBONATE\CHOLECALCIFEROL [Concomitant]
     Active Substance: CALCIUM CARBONATE\CHOLECALCIFEROL
  35. VITAMIN C [Concomitant]
     Active Substance: ASCORBIC ACID
  36. MAGNESIUM [Concomitant]
     Active Substance: MAGNESIUM
  37. VITAMIN B [Concomitant]
     Active Substance: VITAMIN B
  38. VITAMIN B12 [Concomitant]
     Active Substance: CYANOCOBALAMIN
  39. LACTOBACILLUS ACID [Concomitant]

REACTIONS (25)
  - Deafness unilateral [Unknown]
  - Pancytopenia [Unknown]
  - Flushing [Recovered/Resolved]
  - Asthenopia [Unknown]
  - Nasal congestion [Unknown]
  - Oropharyngeal pain [Unknown]
  - Headache [Unknown]
  - Fluid retention [Unknown]
  - Palpitations [Recovered/Resolved]
  - Fatigue [Unknown]
  - Blood pressure decreased [Unknown]
  - Diarrhoea [Unknown]
  - Flatulence [Unknown]
  - Abdominal discomfort [Unknown]
  - Muscle spasms [Unknown]
  - Pain in extremity [Unknown]
  - Sinus disorder [Unknown]
  - Meniscus injury [Unknown]
  - Seasonal allergy [Unknown]
  - Arthralgia [Unknown]
  - Myalgia [Unknown]
  - Abdominal distension [Unknown]
  - SARS-CoV-2 test positive [Unknown]
  - Therapy non-responder [Unknown]
  - Off label use [Unknown]

NARRATIVE: CASE EVENT DATE: 20230803
